FAERS Safety Report 23747771 (Version 1)
Quarter: 2024Q2

REPORT INFORMATION
  Report Type: Spontaneous
  Country: US (occurrence: None)
  Receive Date: 20240416
  Receipt Date: 20240416
  Transmission Date: 20240715
  Serious: No
  Sender: FDA-Public Use
  Company Number: None

PATIENT
  Sex: Male
  Weight: 94 kg

DRUGS (2)
  1. CYTARABINE [Suspect]
     Active Substance: CYTARABINE
  2. DAUNORUBICIN [Suspect]
     Active Substance: DAUNORUBICIN

REACTIONS (3)
  - Pulmonary oedema [None]
  - Acute respiratory failure [None]
  - Transfusion-related circulatory overload [None]

NARRATIVE: CASE EVENT DATE: 20240412
